FAERS Safety Report 4610163-0 (Version None)
Quarter: 2005Q2

REPORT INFORMATION
  Report Type: 
  Country: None (occurrence: None)
  Receive Date: 20050301
  Receipt Date: 20041109
  Transmission Date: 20051028
  Serious: No
  Sender: FDA-Public Use
  Company Number: WAES 0411USA01636

PATIENT
  Age: 74 Year
  Sex: Female

DRUGS (4)
  1. ZETIA [Suspect]
     Indication: HYPERCHOLESTEROLAEMIA
     Dosage: 10 MG DAILY PO
     Route: 048
     Dates: start: 20041107
  2. NORVASC [Concomitant]
  3. ATENOLOL [Concomitant]
  4. VITAMINS (UNSPECIFIED) [Concomitant]

REACTIONS (1)
  - ORAL PAIN [None]
